FAERS Safety Report 16046203 (Version 1)
Quarter: 2019Q1

REPORT INFORMATION
  Report Type: Spontaneous
  Country: FR (occurrence: FR)
  Receive Date: 20190307
  Receipt Date: 20190307
  Transmission Date: 20190418
  Serious: Yes (Other)
  Sender: FDA-Public Use
  Company Number: FR-ORION CORPORATION ORION PHARMA-19_00005661

PATIENT
  Age: 55 Year
  Sex: Female
  Weight: 46 kg

DRUGS (2)
  1. MABTHERA [Suspect]
     Active Substance: RITUXIMAB
     Indication: NEOPLASM MALIGNANT
     Route: 041
     Dates: start: 20180209
  2. IMETH [Suspect]
     Active Substance: METHOTREXATE SODIUM
     Indication: NEOPLASM MALIGNANT
     Dosage: STRENGTH: 10 MG
     Route: 048
     Dates: start: 20180210

REACTIONS (1)
  - Polyneuropathy [Unknown]

NARRATIVE: CASE EVENT DATE: 20180322
